FAERS Safety Report 23407749 (Version 1)
Quarter: 2024Q1

REPORT INFORMATION
  Report Type: Spontaneous
  Country: US (occurrence: US)
  Receive Date: 20240117
  Receipt Date: 20240117
  Transmission Date: 20240409
  Serious: No
  Sender: FDA-Public Use
  Company Number: US-TERSERA THERAPEUTICS LLC-2023TRS002659

PATIENT

DRUGS (1)
  1. ZICONOTIDE [Suspect]
     Active Substance: ZICONOTIDE
     Indication: Pain
     Dosage: UNK
     Route: 037

REACTIONS (2)
  - Adverse drug reaction [Recovered/Resolved]
  - Amnesia [Recovered/Resolved]
